FAERS Safety Report 11176938 (Version 1)
Quarter: 2015Q2

REPORT INFORMATION
  Report Type: Spontaneous
  Country: BR (occurrence: BR)
  Receive Date: 20150610
  Receipt Date: 20150610
  Transmission Date: 20150821
  Serious: Yes (Other)
  Sender: FDA-Public Use
  Company Number: BR-ROCHE-1588289

PATIENT
  Sex: Male

DRUGS (6)
  1. CARBOLITIUM CR [Concomitant]
  2. RIVOTRIL [Suspect]
     Active Substance: CLONAZEPAM
     Indication: PARTIAL SEIZURES
     Dosage: 9DROPS/MORNING, 9DROPS/AFTERNOON AND 9DROPS/EVENING?STARTED TREATMENT 26 YEARS AGO
     Route: 048
     Dates: start: 1989
  3. OXCARBAZEPINE. [Concomitant]
     Active Substance: OXCARBAZEPINE
  4. BUPROPION HYDROCHLORIDE. [Concomitant]
     Active Substance: BUPROPION HYDROCHLORIDE
  5. SOCIAN [Concomitant]
     Active Substance: AMISULPRIDE
     Route: 065
  6. DOGMATIL [Concomitant]
     Active Substance: SULPIRIDE
     Route: 065

REACTIONS (7)
  - Accidental exposure to product [Unknown]
  - Somnolence [Unknown]
  - Intentional product use issue [Unknown]
  - Epilepsy [Unknown]
  - Malaise [Unknown]
  - Product dropper issue [Unknown]
  - Nervousness [Unknown]
